FAERS Safety Report 9426414 (Version 1)
Quarter: 2013Q3

REPORT INFORMATION
  Report Type: Spontaneous
  Country: US (occurrence: US)
  Receive Date: 20130730
  Receipt Date: 20130730
  Transmission Date: 20140515
  Serious: Yes (Hospitalization)
  Sender: FDA-Public Use
  Company Number: US-BAYER-2013-091783

PATIENT
  Age: 30 Year
  Sex: Female

DRUGS (5)
  1. YAZ [Suspect]
     Dosage: UNK
     Dates: start: 19951228, end: 20010815
  2. YASMIN [Suspect]
     Dosage: UNK
     Dates: start: 19951228, end: 20010815
  3. OCELLA [Suspect]
     Dosage: UNK
     Dates: start: 19951228, end: 20010815
  4. ROBITUSSIN [DEXTROMETHORPHAN HYDROBROMIDE] [Concomitant]
     Indication: COUGH
  5. LEVAQUIN [Concomitant]
     Indication: PNEUMONIA

REACTIONS (1)
  - Pulmonary embolism [None]
